FAERS Safety Report 9107358 (Version 1)
Quarter: 2013Q1

REPORT INFORMATION
  Report Type: Spontaneous
  Country: CH (occurrence: CH)
  Receive Date: 20130221
  Receipt Date: 20130221
  Transmission Date: 20140127
  Serious: Yes (Hospitalization)
  Sender: FDA-Public Use
  Company Number: CH-JNJFOC-20130210267

PATIENT
  Age: 82 Year
  Sex: Female

DRUGS (12)
  1. XARELTO [Suspect]
     Indication: THROMBOSIS PROPHYLAXIS
     Route: 048
     Dates: start: 20121125, end: 20130101
  2. XARELTO [Suspect]
     Indication: ORTHOPAEDIC PROCEDURE
     Route: 048
     Dates: start: 20121125, end: 20130101
  3. SORTIS (ATORVASTATIN) [Concomitant]
     Route: 048
  4. KEPPRA [Concomitant]
     Route: 048
  5. LISITRIL [Concomitant]
     Route: 048
  6. NOVALGIN [Concomitant]
     Route: 048
  7. FLUIMUCIL [Concomitant]
     Route: 048
  8. DAFALGAN [Concomitant]
     Route: 048
  9. DIPIPERON [Concomitant]
     Route: 048
  10. ALUCOL FRUCHTAROMA [Concomitant]
     Dosage: 175MG/375 MG PER DOSAGE FORM
     Route: 065
  11. CALCIMAGON-D3 [Concomitant]
     Route: 048
  12. METAMUCIL [Concomitant]
     Route: 048

REACTIONS (4)
  - Anaemia [Recovering/Resolving]
  - Asthenia [Recovering/Resolving]
  - Melaena [Recovering/Resolving]
  - Gastrointestinal haemorrhage [Recovering/Resolving]
